FAERS Safety Report 6445394-0 (Version None)
Quarter: 2009Q4

REPORT INFORMATION
  Report Type: 
  Country: None (occurrence: None)
  Receive Date: 20091118
  Receipt Date: 20091103
  Transmission Date: 20100525
  Serious: Yes (Other)
  Sender: FDA-Public Use
  Company Number: PHEH2007US12073

PATIENT
  Sex: Female

DRUGS (22)
  1. ZOMETA [Suspect]
     Indication: MULTIPLE MYELOMA
     Dosage: 4 MG, QMO
     Dates: start: 20040101
  2. ZOMETA [Suspect]
     Indication: BONE LESION
  3. AREDIA [Suspect]
     Dosage: 90MG MONTHLY
  4. NEURONTIN [Concomitant]
     Dosage: 500MG , BEDTIME
  5. LORAZEPAM [Concomitant]
     Dosage: 0.05MG TWICE DAILY
  6. BENTYL [Concomitant]
     Dosage: 10MG TWICE DAILY
  7. PREVACID [Concomitant]
     Dosage: 25MG, TWICE DAILY
  8. AMBIEN [Concomitant]
     Dosage: 10 MG, BEDTIME
  9. OXYCODONE HCL [Concomitant]
     Indication: PAIN
  10. CHEMOTHERAPEUTICS NOS [Concomitant]
  11. NABUMETONE [Concomitant]
     Dosage: UNK
  12. VIOXX [Concomitant]
     Dosage: UNK
  13. COUMADIN [Concomitant]
     Dosage: 4 MG / DAILY
  14. FLEXERIL [Concomitant]
     Dosage: UNK, TAKEN AS NEEDED
  15. CARBIDOPA [Concomitant]
     Indication: MUSCLE SPASMS
     Dosage: UNK
  16. VALIUM [Concomitant]
     Dosage: UNK
  17. SKELAXIN [Concomitant]
     Dosage: 400 MG, 2 TABLETS, 3 X DAY
  18. ATIVAN [Concomitant]
     Dosage: 0.5 , TWICE DAILY
  19. PREDNISONE [Concomitant]
     Dosage: UNK
  20. PAMELOR [Concomitant]
     Dosage: UNK
  21. ZELNORM                                 /CAN/ [Concomitant]
     Dosage: UNK
  22. MOBIC [Concomitant]
     Dosage: UNK

REACTIONS (46)
  - ADENOMA BENIGN [None]
  - ANAEMIA [None]
  - ANHEDONIA [None]
  - ANXIETY [None]
  - AORTIC VALVE SCLEROSIS [None]
  - ARTHRALGIA [None]
  - ARTHRITIS [None]
  - BONE PAIN [None]
  - CARDIAC MURMUR [None]
  - CONSTIPATION [None]
  - DEFORMITY [None]
  - DENTAL CARIES [None]
  - DEPRESSION [None]
  - DIARRHOEA [None]
  - DISCOMFORT [None]
  - DIZZINESS [None]
  - DRUG DEPENDENCE [None]
  - EMOTIONAL DISTRESS [None]
  - HIGH FREQUENCY ABLATION [None]
  - HUMERUS FRACTURE [None]
  - HYPERTENSION [None]
  - HYPOPHAGIA [None]
  - INJURY [None]
  - INSOMNIA [None]
  - JOINT STIFFNESS [None]
  - LABYRINTHITIS [None]
  - LEFT ATRIAL DILATATION [None]
  - MITRAL VALVE SCLEROSIS [None]
  - MOUTH ULCERATION [None]
  - MUSCLE INJURY [None]
  - MUSCLE SPASMS [None]
  - NEUROPATHY PERIPHERAL [None]
  - NON-CARDIAC CHEST PAIN [None]
  - OSTEONECROSIS [None]
  - PAIN [None]
  - RASH [None]
  - REFLUX GASTRITIS [None]
  - SENSITIVITY OF TEETH [None]
  - SWELLING [None]
  - TENDONITIS [None]
  - TOOTH REPAIR [None]
  - TRICUSPID VALVE INCOMPETENCE [None]
  - UPPER LIMB FRACTURE [None]
  - VARICOSE VEIN [None]
  - VENOUS INSUFFICIENCY [None]
  - VERTIGO [None]
